FAERS Safety Report 9625112 (Version 2)
Quarter: 2013Q4

REPORT INFORMATION
  Report Type: Report from Study
  Country: JP (occurrence: JP)
  Receive Date: 20131016
  Receipt Date: 20131208
  Transmission Date: 20140711
  Serious: Yes (Other)
  Sender: FDA-Public Use
  Company Number: JP-ROCHE-1286058

PATIENT
  Sex: Male
  Weight: 50 kg

DRUGS (9)
  1. METHOXY POLYETHYLENE GLYCOL-EPOETIN BETA [Suspect]
     Indication: NEPHROGENIC ANAEMIA
     Route: 042
     Dates: start: 20111227, end: 20111227
  2. METHOXY POLYETHYLENE GLYCOL-EPOETIN BETA [Suspect]
     Indication: NEPHROGENIC ANAEMIA
     Route: 042
     Dates: start: 20120124, end: 20120821
  3. FLIVAS [Concomitant]
     Route: 048
  4. MYSLEE [Concomitant]
     Route: 048
  5. TAKEPRON [Concomitant]
     Route: 048
  6. ADALAT L [Concomitant]
     Route: 048
  7. CARDENALIN [Concomitant]
     Route: 048
  8. NORVASC [Concomitant]
     Route: 048
  9. DIOVAN [Concomitant]
     Route: 048

REACTIONS (1)
  - Anaemia [Unknown]
